FAERS Safety Report 19721224 (Version 1)
Quarter: 2021Q3

REPORT INFORMATION
  Report Type: Spontaneous
  Country: US (occurrence: US)
  Receive Date: 20210819
  Receipt Date: 20210819
  Transmission Date: 20211014
  Serious: No
  Sender: FDA-Public Use
  Company Number: US-AMGEN-USASP2021123909

PATIENT
  Age: 61 Year
  Sex: Female

DRUGS (2)
  1. PROLIA [Suspect]
     Active Substance: DENOSUMAB
     Indication: OSTEOPENIA
     Dosage: UNK
     Route: 065
     Dates: start: 20210804
  2. ENBREL [Suspect]
     Active Substance: ETANERCEPT
     Indication: UNDIFFERENTIATED CONNECTIVE TISSUE DISEASE
     Dosage: 50 MILLIGRAM (MINI CARTRIDGES)
     Route: 065
     Dates: start: 2019

REACTIONS (5)
  - Product use in unapproved indication [Unknown]
  - Tooth infection [Unknown]
  - Drug ineffective for unapproved indication [Unknown]
  - Drug hypersensitivity [Recovered/Resolved]
  - Oral allergy syndrome [Unknown]

NARRATIVE: CASE EVENT DATE: 20210804
